FAERS Safety Report 22336438 (Version 4)
Quarter: 2024Q1

REPORT INFORMATION
  Report Type: Report from Study
  Country: DE (occurrence: DE)
  Receive Date: 20230518
  Receipt Date: 20240104
  Transmission Date: 20240409
  Serious: Yes (Other)
  Sender: FDA-Public Use
  Company Number: DE-ABBVIE-4766650

PATIENT
  Age: 43 Year
  Sex: Male
  Weight: 100 kg

DRUGS (13)
  1. UPADACITINIB [Suspect]
     Active Substance: UPADACITINIB
     Indication: Colitis ulcerative
     Route: 048
     Dates: start: 20221202, end: 20221221
  2. UPADACITINIB [Suspect]
     Active Substance: UPADACITINIB
     Indication: Colitis ulcerative
     Route: 048
     Dates: start: 20221225, end: 20230130
  3. UPADACITINIB [Suspect]
     Active Substance: UPADACITINIB
     Indication: Colitis ulcerative
     Route: 048
     Dates: start: 20230131, end: 20230406
  4. UPADACITINIB [Suspect]
     Active Substance: UPADACITINIB
     Indication: Colitis ulcerative
     Route: 048
     Dates: start: 20230407
  5. PANTOPRAZOLE SODIUM [Concomitant]
     Active Substance: PANTOPRAZOLE SODIUM
     Indication: Dyspepsia
     Dosage: TIME INTERVAL: AS NECESSARY
     Route: 048
     Dates: start: 20211111
  6. METHYLPHENIDATE [Concomitant]
     Active Substance: METHYLPHENIDATE
     Indication: Attention deficit hyperactivity disorder
     Route: 048
     Dates: start: 20230324
  7. CANNABIDIOL\HERBALS [Concomitant]
     Active Substance: CANNABIDIOL\HERBALS
     Indication: Colitis ulcerative
     Dosage: TIME INTERVAL: AS NECESSARY
     Route: 048
     Dates: start: 202201
  8. METHYLPHENIDAT HCL RATIOPHARM [Concomitant]
     Indication: Attention deficit hyperactivity disorder
     Route: 048
     Dates: start: 20230303, end: 20230323
  9. METHYLPHENIDAT HCL RATIOPHARM [Concomitant]
     Indication: Attention deficit hyperactivity disorder
     Route: 048
     Dates: start: 20230228, end: 20230302
  10. SHINGRIX [Concomitant]
     Active Substance: RECOMBINANT VARICELLA ZOSTER VIRUS (VZV) GLYCOPROTEIN E
     Indication: Herpes zoster immunisation
     Dosage: 1 APPLICATION?ONCE
     Route: 030
     Dates: start: 20230406, end: 20230406
  11. MESALAMINE [Concomitant]
     Active Substance: MESALAMINE
     Indication: Colitis ulcerative
     Dosage: TIME INTERVAL: AS NECESSARY: 1 SUPPOSITORY
     Route: 054
     Dates: start: 20220117
  12. ORTOTON [Concomitant]
     Indication: Tendonitis
     Route: 042
     Dates: start: 20230111, end: 202302
  13. ASACOL [Concomitant]
     Active Substance: MESALAMINE
     Indication: Colitis ulcerative
     Route: 048
     Dates: start: 20230629

REACTIONS (3)
  - Osteonecrosis [Recovered/Resolved]
  - Oedema peripheral [Recovered/Resolved]
  - Back pain [Recovered/Resolved]

NARRATIVE: CASE EVENT DATE: 20230324
